FAERS Safety Report 25921902 (Version 1)
Quarter: 2025Q4

REPORT INFORMATION
  Report Type: Report from Study
  Country: EU (occurrence: EU)
  Receive Date: 20251015
  Receipt Date: 20251015
  Transmission Date: 20260119
  Serious: Yes (Hospitalization)
  Sender: ABBVIE
  Company Number: EU-ABBVIE-6499666

PATIENT
  Sex: Male

DRUGS (7)
  1. FOSCARBIDOPA\FOSLEVODOPA [Suspect]
     Active Substance: FOSCARBIDOPA\FOSLEVODOPA
     Indication: Parkinson^s disease
     Dosage: 240/12 MG/ML  LR HIGH: 0.31 ML/H,  LR LOW: 0.23 ML/H?CR: 0.35 ML/H, CRH: 0.38 ML/H, CRN: 0.27 ML/...
     Route: 058
     Dates: start: 20240624
  2. MIRABEGRON [Concomitant]
     Active Substance: MIRABEGRON
     Indication: Product used for unknown indication
  3. TAMSULOSIN [Concomitant]
     Active Substance: TAMSULOSIN
     Indication: Product used for unknown indication
  4. FERROUS GLUCONATE [Concomitant]
     Active Substance: FERROUS GLUCONATE
     Indication: Product used for unknown indication
  5. RAMIPRIL [Concomitant]
     Active Substance: RAMIPRIL
     Indication: Product used for unknown indication
  6. TORSEMIDE [Concomitant]
     Active Substance: TORSEMIDE
     Indication: Product used for unknown indication
  7. TRAZODONE [Concomitant]
     Active Substance: TRAZODONE HYDROCHLORIDE
     Indication: Product used for unknown indication

REACTIONS (19)
  - Neuralgia [Not Recovered/Not Resolved]
  - Parkinson^s disease [Recovering/Resolving]
  - Gait disturbance [Unknown]
  - Sleep disorder [Not Recovered/Not Resolved]
  - Movement disorder [Not Recovered/Not Resolved]
  - Impaired driving ability [Unknown]
  - Decreased vibratory sense [Unknown]
  - Device dislocation [Not Recovered/Not Resolved]
  - Fall [Unknown]
  - Arthralgia [Unknown]
  - Drug ineffective [Unknown]
  - Visual acuity reduced [Unknown]
  - Reduced facial expression [Unknown]
  - Dysphonia [Unknown]
  - Peripheral sensorimotor neuropathy [Unknown]
  - Gaze palsy [Unknown]
  - Paresis [Unknown]
  - Monoparesis [Unknown]
  - Psychomotor skills impaired [Unknown]
